FAERS Safety Report 5673016-5 (Version None)
Quarter: 2008Q1

REPORT INFORMATION
  Report Type: 
  Country: None (occurrence: None)
  Receive Date: 20080319
  Receipt Date: 20080314
  Transmission Date: 20080703
  Serious: Yes (Other)
  Sender: FDA-Public Use
  Company Number: D0054640A

PATIENT
  Sex: Female

DRUGS (3)
  1. VIANI [Suspect]
     Indication: ASTHMA
     Dosage: 275MCG FOUR TIMES PER DAY
     Route: 055
     Dates: start: 20070101
  2. SYMBICORT [Suspect]
     Indication: ASTHMA
     Route: 055
     Dates: start: 20080101
  3. SINGULAIR [Concomitant]
     Route: 065

REACTIONS (8)
  - CHILLS [None]
  - DRUG INEFFECTIVE [None]
  - DYSPNOEA [None]
  - INSOMNIA [None]
  - NASOPHARYNGITIS [None]
  - NERVOUSNESS [None]
  - PEAK EXPIRATORY FLOW RATE DECREASED [None]
  - PNEUMONIA [None]
